FAERS Safety Report 10374210 (Version 1)
Quarter: 2014Q3

REPORT INFORMATION
  Report Type: Spontaneous
  Country: DE (occurrence: DE)
  Receive Date: 20140811
  Receipt Date: 20140811
  Transmission Date: 20150326
  Serious: Yes (Other)
  Sender: FDA-Public Use
  Company Number: DE-PFIZER INC-2014218312

PATIENT
  Age: 62 Year
  Sex: Female
  Weight: 54 kg

DRUGS (2)
  1. LYRICA [Suspect]
     Active Substance: PREGABALIN
     Indication: NEURALGIA
     Dosage: 225 MG, 2X/DAY
     Route: 048
     Dates: start: 2005
  2. LYRICA [Suspect]
     Active Substance: PREGABALIN
     Dosage: UNK
     Route: 048

REACTIONS (7)
  - Fall [Unknown]
  - Appendix disorder [Unknown]
  - Dizziness [Recovered/Resolved with Sequelae]
  - Uterine disorder [Unknown]
  - Gastrointestinal pain [Recovered/Resolved with Sequelae]
  - Rash [Recovered/Resolved with Sequelae]
  - Dry mouth [Unknown]

NARRATIVE: CASE EVENT DATE: 2005
